FAERS Safety Report 14372446 (Version 2)
Quarter: 2018Q2

REPORT INFORMATION
  Report Type: Spontaneous
  Country: JP (occurrence: JP)
  Receive Date: 20180110
  Receipt Date: 20180416
  Transmission Date: 20180711
  Serious: Yes (Other)
  Sender: FDA-Public Use
  Company Number: JP-SA-2018SA004831

PATIENT
  Age: 69 Year
  Sex: Female

DRUGS (1)
  1. XYZALL [Suspect]
     Active Substance: LEVOCETIRIZINE DIHYDROCHLORIDE
     Indication: PRODUCT USED FOR UNKNOWN INDICATION
     Route: 048
     Dates: start: 201610, end: 201611

REACTIONS (2)
  - Hepatic function abnormal [Unknown]
  - Drug-induced liver injury [Unknown]
